FAERS Safety Report 16795513 (Version 1)
Quarter: 2019Q3

REPORT INFORMATION
  Report Type: Report from Study
  Country: None (occurrence: BR)
  Receive Date: 20190911
  Receipt Date: 20190911
  Transmission Date: 20191005
  Serious: Yes (Hospitalization, Disabling, Other)
  Sender: FDA-Public Use
  Company Number: BR-ABBVIE-19K-020-2913964-00

PATIENT
  Sex: Male
  Weight: 62 kg

DRUGS (5)
  1. METICORTEN [Concomitant]
     Active Substance: PREDNISONE
     Indication: PRODUCT USED FOR UNKNOWN INDICATION
     Dosage: DOSE INCREASE OR DECREASE, VARYING BETWEEN 05 MG AND 10 MG
     Route: 048
  2. HUMIRA [Suspect]
     Active Substance: ADALIMUMAB
     Indication: ANKYLOSING SPONDYLITIS
     Route: 058
  3. DEFLAZACORT [Concomitant]
     Active Substance: DEFLAZACORT
     Indication: INFLAMMATION
     Route: 048
  4. ALPRAZOLAM. [Concomitant]
     Active Substance: ALPRAZOLAM
     Indication: INSOMNIA
     Route: 048
  5. RITMONORM [Concomitant]
     Active Substance: PROPAFENONE HYDROCHLORIDE
     Indication: ARRHYTHMIA
     Route: 048

REACTIONS (17)
  - Musculoskeletal stiffness [Recovering/Resolving]
  - Hypoaesthesia [Recovering/Resolving]
  - Mobility decreased [Unknown]
  - Mobility decreased [Recovering/Resolving]
  - Intervertebral disc disorder [Unknown]
  - Deformity [Unknown]
  - Hypertension [Recovering/Resolving]
  - Blood pressure inadequately controlled [Recovering/Resolving]
  - Bone callus excessive [Recovered/Resolved]
  - Body height decreased [Unknown]
  - Carpal tunnel syndrome [Unknown]
  - Hypotension [Recovering/Resolving]
  - Ulcer [Recovered/Resolved]
  - Bone marrow disorder [Recovered/Resolved]
  - Gastritis [Not Recovered/Not Resolved]
  - Coordination abnormal [Recovering/Resolving]
  - Dyspepsia [Not Recovered/Not Resolved]

NARRATIVE: CASE EVENT DATE: 2015
